FAERS Safety Report 5695920-4 (Version None)
Quarter: 2008Q2

REPORT INFORMATION
  Report Type: 
  Country: None (occurrence: None)
  Receive Date: 20080407
  Receipt Date: 20080403
  Transmission Date: 20081010
  Serious: Yes (Other)
  Sender: FDA-Public Use
  Company Number: A0719089A

PATIENT
  Age: 26 Year
  Sex: Female

DRUGS (1)
  1. ALLI [Suspect]

REACTIONS (5)
  - GENITAL HAEMORRHAGE [None]
  - MENSTRUAL DISORDER [None]
  - OLIGOMENORRHOEA [None]
  - POLYMENORRHOEA [None]
  - VAGINAL HAEMORRHAGE [None]
